FAERS Safety Report 6850885-4 (Version None)
Quarter: 2010Q3

REPORT INFORMATION
  Report Type: 
  Country: None (occurrence: None)
  Receive Date: 20100716
  Receipt Date: 20071026
  Transmission Date: 20110219
  Serious: No
  Sender: FDA-Public Use
  Company Number: US-PFIZER INC-2007090272

PATIENT
  Sex: Male
  Weight: 60.3 kg

DRUGS (4)
  1. CHANTIX [Suspect]
     Indication: SMOKING CESSATION THERAPY
     Dates: start: 20070904, end: 20071001
  2. ALEVE (CAPLET) [Concomitant]
  3. HYDROCODONE [Concomitant]
  4. SOMA [Concomitant]

REACTIONS (2)
  - ABNORMAL DREAMS [None]
  - DRY MOUTH [None]
